FAERS Safety Report 10765340 (Version 1)
Quarter: 2015Q1

REPORT INFORMATION
  Report Type: Other
  Country: US (occurrence: US)
  Receive Date: 20150205
  Receipt Date: 20150205
  Transmission Date: 20150721
  Serious: No
  Sender: FDA-Public Use
  Company Number: US-ACORDA-ACO_103183_2014

PATIENT
  Sex: Female

DRUGS (1)
  1. AMPYRA [Suspect]
     Active Substance: DALFAMPRIDINE
     Indication: MOBILITY DECREASED
     Dosage: UNK
     Route: 065
     Dates: start: 2012

REACTIONS (8)
  - Peripheral swelling [Unknown]
  - Mobility decreased [Unknown]
  - Fall [Unknown]
  - Therapy cessation [Unknown]
  - General physical health deterioration [Not Recovered/Not Resolved]
  - Decreased activity [Not Recovered/Not Resolved]
  - Therapeutic response unexpected [Unknown]
  - Weight increased [Unknown]
